FAERS Safety Report 20780907 (Version 1)
Quarter: 2022Q2

REPORT INFORMATION
  Report Type: Report from Study
  Country: IT (occurrence: IT)
  Receive Date: 20220504
  Receipt Date: 20220504
  Transmission Date: 20220720
  Serious: Yes (Hospitalization, Other)
  Sender: FDA-Public Use
  Company Number: IT-UCBSA-2021061592

PATIENT
  Age: 70 Year
  Sex: Male

DRUGS (5)
  1. ROTIGOTINE [Suspect]
     Active Substance: ROTIGOTINE
     Indication: Product used for unknown indication
     Dosage: 2 MILLIGRAM, ONCE DAILY (QD)
     Route: 062
  2. ROTIGOTINE [Suspect]
     Active Substance: ROTIGOTINE
     Dosage: 2 MILLIGRAM, 2X/DAY (HE APPLIES IN THE EVENING AT 8PM AND TAKES OFF IN THE MORNING AT 8AM (12H))
     Route: 062
  3. SINEMET [Concomitant]
     Active Substance: CARBIDOPA\LEVODOPA
     Indication: Product used for unknown indication
  4. RIVOTRIL [Concomitant]
     Active Substance: CLONAZEPAM
     Indication: Product used for unknown indication
  5. SEROQUEL [Concomitant]
     Active Substance: QUETIAPINE FUMARATE
     Indication: Product used for unknown indication

REACTIONS (11)
  - Hospitalisation [Recovered/Resolved]
  - COVID-19 [Unknown]
  - Haematemesis [Unknown]
  - Pyrexia [Unknown]
  - Pneumonia [Unknown]
  - Urinary tract infection [Recovering/Resolving]
  - Nervousness [Recovering/Resolving]
  - Aggression [Recovering/Resolving]
  - Product use issue [Unknown]
  - General physical health deterioration [Unknown]
  - Somnolence [Unknown]

NARRATIVE: CASE EVENT DATE: 20200101
